FAERS Safety Report 20835694 (Version 1)
Quarter: 2022Q2

REPORT INFORMATION
  Report Type: Spontaneous
  Country: US (occurrence: US)
  Receive Date: 20220516
  Receipt Date: 20220516
  Transmission Date: 20220721
  Serious: No
  Sender: FDA-Public Use
  Company Number: US-PFIZER INC-202200010913

PATIENT
  Age: 41 Year
  Sex: Male
  Weight: 88.45 kg

DRUGS (1)
  1. LEVOXYL [Suspect]
     Active Substance: LEVOTHYROXINE SODIUM
     Indication: Hypothyroidism
     Dosage: UNK,1X/DAY
     Route: 048

REACTIONS (1)
  - Intraocular pressure test [Unknown]
